FAERS Safety Report 4654073-1 (Version None)
Quarter: 2005Q2

REPORT INFORMATION
  Report Type: 
  Country: None (occurrence: None)
  Receive Date: 20050404
  Receipt Date: 20050111
  Transmission Date: 20051028
  Serious: No
  Sender: FDA-Public Use
  Company Number: USA050187981

PATIENT
  Age: 47 Year
  Sex: Female

DRUGS (1)
  1. CYMBALTA [Suspect]
     Indication: DEPRESSION
     Dosage: 30 MG
     Dates: start: 20041001

REACTIONS (4)
  - DRUG INEFFECTIVE [None]
  - ENZYME ABNORMALITY [None]
  - FEELING ABNORMAL [None]
  - MOOD SWINGS [None]
